FAERS Safety Report 9329317 (Version 3)
Quarter: 2013Q3

REPORT INFORMATION
  Report Type: Spontaneous
  Country: JP (occurrence: JP)
  Receive Date: 20130604
  Receipt Date: 20130712
  Transmission Date: 20140515
  Serious: Yes (Death)
  Sender: FDA-Public Use
  Company Number: JP-GLAXOSMITHKLINE-B0896094A

PATIENT
  Sex: 0

DRUGS (1)
  1. VOTRIENT [Suspect]
     Indication: ANGIOSARCOMA
     Route: 048
     Dates: start: 201304, end: 20130516

REACTIONS (4)
  - Haemorrhage [Unknown]
  - Metastases to lung [Unknown]
  - Death [Fatal]
  - Adverse reaction [Unknown]
